FAERS Safety Report 19359809 (Version 2)
Quarter: 2021Q2

REPORT INFORMATION
  Report Type: Spontaneous
  Country: US (occurrence: US)
  Receive Date: 20210601
  Receipt Date: 20210629
  Transmission Date: 20210717
  Serious: No
  Sender: FDA-Public Use
  Company Number: US-PFIZER INC-2021508399

PATIENT
  Age: 36 Year
  Sex: Female

DRUGS (1)
  1. DEPO?PROVERA [Suspect]
     Active Substance: MEDROXYPROGESTERONE ACETATE
     Dosage: 0.65 ML, (SINGLE DOSE)

REACTIONS (3)
  - Wrong technique in device usage process [Unknown]
  - Device occlusion [Unknown]
  - Drug dose omission by device [Unknown]
